FAERS Safety Report 5357944-6 (Version None)
Quarter: 2007Q2

REPORT INFORMATION
  Report Type: 
  Country: None (occurrence: None)
  Receive Date: 20070530
  Receipt Date: 20070306
  Transmission Date: 20071010
  Serious: Yes (Other)
  Sender: FDA-Public Use
  Company Number: US200701000617

PATIENT
  Age: 37 Year
  Sex: Female
  Weight: 113.4 kg

DRUGS (3)
  1. ZYPREXA [Suspect]
     Indication: MAJOR DEPRESSION
     Dosage: SEE IMAGE
     Route: 048
     Dates: end: 20040101
  2. ZYPREXA [Suspect]
     Indication: MAJOR DEPRESSION
     Dosage: SEE IMAGE
     Route: 048
     Dates: start: 20000101
  3. ZOLOFT [Concomitant]

REACTIONS (16)
  - ACETONAEMIA [None]
  - ACTIVITIES OF DAILY LIVING IMPAIRED [None]
  - BURNING SENSATION [None]
  - CONFUSIONAL STATE [None]
  - DIABETES MELLITUS NON-INSULIN-DEPENDENT [None]
  - DISORIENTATION [None]
  - FEAR [None]
  - KETONURIA [None]
  - METABOLIC DISORDER [None]
  - PARANOIA [None]
  - PSYCHOTIC DISORDER [None]
  - SOCIAL AVOIDANT BEHAVIOUR [None]
  - SOMNOLENCE [None]
  - SUICIDAL IDEATION [None]
  - SUICIDE ATTEMPT [None]
  - WEIGHT INCREASED [None]
